FAERS Safety Report 24378600 (Version 1)
Quarter: 2024Q3

REPORT INFORMATION
  Report Type: Spontaneous
  Country: US (occurrence: US)
  Receive Date: 20240930
  Receipt Date: 20240930
  Transmission Date: 20241017
  Serious: No
  Sender: ALMUS
  Company Number: US-ALMIRALL-US-2024-2479

PATIENT
  Sex: Female

DRUGS (1)
  1. KLISYRI [Suspect]
     Active Substance: TIRBANIBULIN
     Dates: start: 202311

REACTIONS (1)
  - Erythema [Unknown]
